FAERS Safety Report 8617871-5 (Version None)
Quarter: 2012Q3

REPORT INFORMATION
  Report Type: 
  Country: None (occurrence: None)
  Receive Date: 20120824
  Receipt Date: 20120322
  Transmission Date: 20120928
  Serious: No
  Sender: FDA-Public Use
  Company Number: US-ASTRAZENECA-2012SE19471

PATIENT
  Age: 69 Year
  Sex: Male
  Weight: 65.8 kg

DRUGS (2)
  1. SYMBICORT [Suspect]
     Indication: CHRONIC OBSTRUCTIVE PULMONARY DISEASE
     Dosage: 160/4.5 UNKNOWN
     Route: 055
  2. SPIRIVA [Concomitant]

REACTIONS (3)
  - PARAESTHESIA [None]
  - NEUROPATHY PERIPHERAL [None]
  - HYPOAESTHESIA [None]
